FAERS Safety Report 7934938-5 (Version None)
Quarter: 2011Q4

REPORT INFORMATION
  Report Type: 
  Country: None (occurrence: None)
  Receive Date: 20111122
  Receipt Date: 20111115
  Transmission Date: 20120403
  Serious: Yes (Death)
  Sender: FDA-Public Use
  Company Number: NO-ABBOTT-11P-122-0874572-00

PATIENT

DRUGS (1)
  1. VALPROATE SODIUM [Suspect]
     Indication: EPILEPSY

REACTIONS (1)
  - HEPATIC NECROSIS [None]
